FAERS Safety Report 13042585 (Version 1)
Quarter: 2016Q4

REPORT INFORMATION
  Report Type: Spontaneous
  Country: US (occurrence: US)
  Receive Date: 20161219
  Receipt Date: 20161219
  Transmission Date: 20170207
  Serious: Yes (Other)
  Sender: FDA-Public Use
  Company Number: US-CELGENEUS-USA-2016124299

PATIENT
  Age: 74 Year
  Sex: Female

DRUGS (4)
  1. REVLIMID [Suspect]
     Active Substance: LENALIDOMIDE
     Indication: PLASMA CELL MYELOMA
     Dosage: 20MG
     Route: 048
     Dates: start: 200607
  2. REVLIMID [Suspect]
     Active Substance: LENALIDOMIDE
     Dosage: 10MG
     Route: 048
     Dates: start: 200806
  3. REVLIMID [Suspect]
     Active Substance: LENALIDOMIDE
     Dosage: 25MG-20MG
     Route: 048
     Dates: start: 200610
  4. REVLIMID [Suspect]
     Active Substance: LENALIDOMIDE
     Dosage: 20MG
     Route: 048
     Dates: start: 20070324

REACTIONS (1)
  - Staphylococcal infection [Unknown]

NARRATIVE: CASE EVENT DATE: 20161214
